FAERS Safety Report 12630008 (Version 2)
Quarter: 2016Q3

REPORT INFORMATION
  Report Type: Spontaneous
  Country: US (occurrence: US)
  Receive Date: 20160808
  Receipt Date: 20160830
  Transmission Date: 20161109
  Serious: Yes (Hospitalization)
  Sender: FDA-Public Use
  Company Number: US-B.I. PHARMACEUTICALS,INC./RIDGEFIELD-2016-BI-49454BP

PATIENT
  Age: 46 Year
  Sex: Female

DRUGS (4)
  1. COMBIVENT [Suspect]
     Active Substance: ALBUTEROL SULFATE\IPRATROPIUM BROMIDE
     Dosage: FORMULATION: MDI/INHALATION AEROSOL
     Route: 055
  2. ALBUTEROL BROMIDE [Concomitant]
     Indication: CHRONIC OBSTRUCTIVE PULMONARY DISEASE
     Dosage: NEBULIZER
     Route: 055
  3. COMBIVENT [Suspect]
     Active Substance: ALBUTEROL SULFATE\IPRATROPIUM BROMIDE
     Indication: ASTHMA
     Dosage: FORMULATION: MDI/INHALATION AEROSOL; STRENGTH: 18 MCG/103 MCG; DOSE PER APP: 36MCG/206MCG; DAILY DOS
     Route: 055
     Dates: start: 1996, end: 2014
  4. ALBUTEROL BROMIDE [Concomitant]
     Indication: ASTHMA

REACTIONS (6)
  - Rhinorrhoea [Recovered/Resolved]
  - Hyperhidrosis [Recovered/Resolved]
  - Off label use [Recovered/Resolved]
  - Vomiting [Recovered/Resolved]
  - White blood cell count increased [Recovered/Resolved]
  - Asthenia [Recovered/Resolved]

NARRATIVE: CASE EVENT DATE: 1996
